APPROVED DRUG PRODUCT: CYCLOPHOSPHAMIDE
Active Ingredient: CYCLOPHOSPHAMIDE
Strength: 500MG/5ML (100MG/ML)
Dosage Form/Route: SOLUTION;INTRAVENOUS
Application: N217150 | Product #001
Applicant: SANDOZ INC
Approved: Sep 12, 2023 | RLD: Yes | RS: Yes | Type: RX